FAERS Safety Report 23054223 (Version 1)
Quarter: 2023Q4

REPORT INFORMATION
  Report Type: Spontaneous
  Country: US (occurrence: None)
  Receive Date: 20231010
  Receipt Date: 20231010
  Transmission Date: 20240110
  Serious: Yes (Other)
  Sender: FDA-Public Use
  Company Number: None

PATIENT
  Age: 56 Year
  Sex: Female

DRUGS (1)
  1. OZEMPIC [Suspect]
     Active Substance: SEMAGLUTIDE
     Dosage: OTHER FREQUENCY : ONCE PER WEEK;?OTHER ROUTE : SUBCUTANEOUS INJECTION;?
     Route: 050
     Dates: start: 20230123, end: 20230820

REACTIONS (13)
  - Alopecia [None]
  - Alopecia [None]
  - Nausea [None]
  - Vomiting [None]
  - Abdominal pain [None]
  - Diarrhoea [None]
  - Constipation [None]
  - Dyspepsia [None]
  - Gastrooesophageal reflux disease [None]
  - Abdominal distension [None]
  - Headache [None]
  - Dry eye [None]
  - Fatigue [None]

NARRATIVE: CASE EVENT DATE: 20230720
